FAERS Safety Report 4466101-7 (Version None)
Quarter: 2004Q3

REPORT INFORMATION
  Report Type: 
  Country: None (occurrence: None)
  Receive Date: 20040930
  Receipt Date: 20040914
  Transmission Date: 20050211
  Serious: Yes (Other)
  Sender: FDA-Public Use
  Company Number: DE_040714004

PATIENT
  Age: 56 Year
  Sex: Male

DRUGS (3)
  1. GEMZAR [Suspect]
     Indication: BRONCHIAL CARCINOMA
     Dosage: 2000 MG
     Route: 042
     Dates: start: 20040101, end: 20040101
  2. DEXAMETHASONE [Concomitant]
  3. ACETAMINOPHEN [Concomitant]

REACTIONS (7)
  - HAEMATOCHEZIA [None]
  - INFLUENZA LIKE ILLNESS [None]
  - PAIN IN EXTREMITY [None]
  - PETECHIAE [None]
  - PYREXIA [None]
  - THROMBOCYTOPENIA [None]
  - VASCULITIS [None]
